FAERS Safety Report 16717226 (Version 1)
Quarter: 2019Q3

REPORT INFORMATION
  Report Type: Spontaneous
  Country: NL (occurrence: NL)
  Receive Date: 20190819
  Receipt Date: 20190819
  Transmission Date: 20191005
  Serious: Yes (Other)
  Sender: FDA-Public Use
  Company Number: NL-TEVA-2019-NL-1093033

PATIENT
  Age: 79 Year
  Sex: Male
  Weight: 69 kg

DRUGS (7)
  1. RIVASTIGMINE 9,5MG/24U [Concomitant]
  2. OMEPRAZOL 40MG [Concomitant]
     Dosage: 1DD1
  3. QUETIAPINE TABLET, 12,5 MG (MILLIGRAM) [Suspect]
     Active Substance: QUETIAPINE
     Indication: DELUSION
     Dosage: 1DD1
     Dates: start: 20190301, end: 20190618
  4. LACTULOSE 670MG/ML [Concomitant]
     Dosage: 2DD15ML
  5. QUETIAPINE TABLET, 12,5 MG (MILLIGRAM) [Suspect]
     Active Substance: QUETIAPINE
     Indication: HALLUCINATION
  6. LEVODOPA-BENSERAZIDE 100/25MG [Concomitant]
     Dosage: 3DD2
  7. CALCIUMCARBONAAT/COLECALCIFEROL 1,25G/800IE [Concomitant]
     Dosage: 1DD1

REACTIONS (1)
  - Pancytopenia [Recovered/Resolved]

NARRATIVE: CASE EVENT DATE: 20190617
